FAERS Safety Report 8857394 (Version 2)
Quarter: 2012Q4

REPORT INFORMATION
  Report Type: 
  Country: US (occurrence: US)
  Receive Date: 20121024
  Receipt Date: 20121115
  Transmission Date: 20130627
  Serious: No
  Sender: FDA-Public Use
  Company Number: US-009507513-1210USA008249

PATIENT
  Sex: Female

DRUGS (2)
  1. PEGINTRON [Suspect]
     Indication: HEPATITIS C
     Dosage: UNK
     Dates: start: 20121002
  2. REBETOL [Suspect]
     Indication: HEPATITIS C
     Dosage: UNK
     Route: 048
     Dates: start: 20121002

REACTIONS (7)
  - Photophobia [Unknown]
  - Tongue disorder [Unknown]
  - Back pain [Unknown]
  - Injection site reaction [Unknown]
  - Headache [Unknown]
  - Pain in jaw [Unknown]
  - Decreased appetite [Unknown]
